FAERS Safety Report 8343276-0 (Version None)
Quarter: 2012Q2

REPORT INFORMATION
  Report Type: 
  Country: None (occurrence: None)
  Receive Date: 20120508
  Receipt Date: 20120430
  Transmission Date: 20120825
  Serious: No
  Sender: FDA-Public Use
  Company Number: US-PFIZER INC-2012104245

PATIENT
  Sex: Female
  Weight: 52.2 kg

DRUGS (3)
  1. AROMASIN [Suspect]
     Indication: BREAST CANCER RECURRENT
     Dosage: 25 MG, DAILY
     Dates: start: 20110501, end: 20110812
  2. EXEMESTANE [Suspect]
     Indication: BREAST CANCER RECURRENT
     Dosage: UNK
  3. ZOLADEX [Concomitant]
     Indication: HORMONE THERAPY
     Dosage: UNK, EVERY 3 MONTHS

REACTIONS (2)
  - MIGRAINE [None]
  - TRIGGER FINGER [None]
